FAERS Safety Report 6627800-1 (Version None)
Quarter: 2010Q1

REPORT INFORMATION
  Report Type: 
  Country: None (occurrence: None)
  Receive Date: 20100308
  Receipt Date: 20100224
  Transmission Date: 20100710
  Serious: No
  Sender: FDA-Public Use
  Company Number: 2010SP007091

PATIENT
  Age: 21 Year
  Sex: Female
  Weight: 59.4212 kg

DRUGS (1)
  1. IMPLANON [Suspect]
     Indication: DRUG USE FOR UNKNOWN INDICATION
     Dosage: 1 DF
     Dates: start: 20090619

REACTIONS (2)
  - HYPERTHYROIDISM [None]
  - PREGNANCY WITH IMPLANT CONTRACEPTIVE [None]
